FAERS Safety Report 9292839 (Version 1)
Quarter: 2013Q1

REPORT INFORMATION
  Report Type: Spontaneous
  Country: US (occurrence: None)
  Receive Date: 20121212
  Receipt Date: 20121212
  Transmission Date: 20140127
  Serious: No
  Sender: FDA-Public Use
  Company Number: 2012USA009855

PATIENT
  Age: 62 Year
  Sex: Male

DRUGS (3)
  1. VICTRELIS [Suspect]
     Indication: CHRONIC HEPATITIS C
     Route: 048
     Dates: start: 20120608
  2. PEGASYS [Suspect]
  3. RIBASPHERE [Suspect]
     Dosage: 400 MG, QAM

REACTIONS (1)
  - Therapy responder [None]
